FAERS Safety Report 9857992 (Version 1)
Quarter: 2014Q1

REPORT INFORMATION
  Report Type: Spontaneous
  Country: NO (occurrence: NO)
  Receive Date: 20140131
  Receipt Date: 20140131
  Transmission Date: 20141002
  Serious: Yes (Hospitalization)
  Sender: FDA-Public Use
  Company Number: PHHY2014NO008976

PATIENT
  Age: 32 Year
  Sex: Female

DRUGS (5)
  1. RITALIN [Suspect]
     Indication: ATTENTION DEFICIT/HYPERACTIVITY DISORDER
     Dosage: 5 MG, BID
     Route: 048
  2. RITALIN [Interacting]
     Indication: BIPOLAR DISORDER
  3. RITALIN [Interacting]
     Indication: HISTRIONIC PERSONALITY DISORDER
  4. ETANOL [Interacting]
     Indication: SOCIAL ALCOHOL DRINKER
     Dosage: 1 BEER, TWO GLASSES OF WINE
     Route: 048
  5. IMOVANE [Interacting]
     Indication: SLEEP DISORDER
     Dosage: 7.5 MG, QD EVENING
     Route: 048

REACTIONS (2)
  - Suicidal ideation [Recovered/Resolved with Sequelae]
  - Psychotic disorder [Recovered/Resolved with Sequelae]
